FAERS Safety Report 17881293 (Version 1)
Quarter: 2020Q2

REPORT INFORMATION
  Report Type: Spontaneous
  Country: SE (occurrence: SE)
  Receive Date: 20200610
  Receipt Date: 20200610
  Transmission Date: 20200714
  Serious: Yes (Disabling)
  Sender: FDA-Public Use
  Company Number: SE-BAYER-2020-103808

PATIENT
  Age: 21 Year
  Sex: Female
  Weight: 50 kg

DRUGS (1)
  1. KYLEENA [Suspect]
     Active Substance: LEVONORGESTREL
     Dosage: 17.5 ?G PER DAY, CONTINUOUSLY
     Route: 015
     Dates: start: 20191029, end: 20200427

REACTIONS (3)
  - Vulvovaginal mycotic infection [Recovered/Resolved with Sequelae]
  - Vulvovaginal injury [Recovered/Resolved with Sequelae]
  - Dyspareunia [Recovered/Resolved with Sequelae]

NARRATIVE: CASE EVENT DATE: 201912
